FAERS Safety Report 7630956-5 (Version None)
Quarter: 2011Q3

REPORT INFORMATION
  Report Type: 
  Country: None (occurrence: None)
  Receive Date: 20110725
  Receipt Date: 20110715
  Transmission Date: 20111222
  Serious: Yes (Hospitalization)
  Sender: FDA-Public Use
  Company Number: US-BIOGENIDEC-2011BI026196

PATIENT
  Age: 57 Year
  Sex: Female

DRUGS (9)
  1. MIRAPEX [Concomitant]
     Route: 048
     Dates: start: 20110415
  2. ATENOLOL [Concomitant]
     Route: 048
     Dates: start: 20110330
  3. LOSARTAN POTASSIUM [Concomitant]
     Route: 048
     Dates: start: 20110330
  4. POTASSIUM CHLORIDE [Concomitant]
     Route: 048
     Dates: start: 20110330
  5. TYSABRI [Suspect]
     Indication: MULTIPLE SCLEROSIS
     Route: 042
     Dates: start: 20081125
  6. BUPROPION HCL [Concomitant]
     Route: 048
     Dates: start: 20110330
  7. FISH OIL [Concomitant]
     Route: 048
     Dates: start: 20101214
  8. RED YEAST RICE [Concomitant]
     Route: 048
     Dates: start: 20101214
  9. HYDROCHLOROTHIAZIDE [Concomitant]
     Route: 048
     Dates: start: 20110330

REACTIONS (1)
  - GASTROINTESTINAL TRACT ADENOMA [None]
